FAERS Safety Report 15726454 (Version 1)
Quarter: 2018Q4

REPORT INFORMATION
  Report Type: Spontaneous
  Country: US (occurrence: US)
  Receive Date: 20181217
  Receipt Date: 20181217
  Transmission Date: 20190205
  Serious: No
  Sender: FDA-Public Use
  Company Number: US-NOVOPROD-572570

PATIENT
  Age: 41 Year
  Sex: Female

DRUGS (2)
  1. LEVEMIR [Suspect]
     Active Substance: INSULIN DETEMIR
     Indication: TYPE 2 DIABETES MELLITUS
     Dosage: 66 U, BID
     Route: 058
     Dates: start: 2014
  2. LEVEMIR [Suspect]
     Active Substance: INSULIN DETEMIR
     Dosage: 60 U, BID
     Route: 058
     Dates: end: 20171109

REACTIONS (7)
  - Muscle spasms [Not Recovered/Not Resolved]
  - Joint lock [Not Recovered/Not Resolved]
  - Condition aggravated [Not Recovered/Not Resolved]
  - Pain [Not Recovered/Not Resolved]
  - Muscle tightness [Not Recovered/Not Resolved]
  - Diabetes mellitus inadequate control [Not Recovered/Not Resolved]
  - Glycosylated haemoglobin abnormal [Not Recovered/Not Resolved]

NARRATIVE: CASE EVENT DATE: 2014
